FAERS Safety Report 8336301-4 (Version None)
Quarter: 2012Q2

REPORT INFORMATION
  Report Type: 
  Country: None (occurrence: None)
  Receive Date: 20120504
  Receipt Date: 20120419
  Transmission Date: 20120825
  Serious: Yes (Hospitalization)
  Sender: FDA-Public Use
  Company Number: US-ENDO PHARMACEUTICALS INC.-OPIR20120051

PATIENT
  Sex: Male

DRUGS (1)
  1. OPANA ER [Suspect]
     Indication: MUSCULOSKELETAL PAIN
     Route: 048
     Dates: start: 20110901, end: 20111001

REACTIONS (4)
  - DECREASED APPETITE [None]
  - DIARRHOEA [None]
  - RECTAL HAEMORRHAGE [None]
  - LARGE INTESTINAL HAEMORRHAGE [None]
